FAERS Safety Report 19933892 (Version 4)
Quarter: 2022Q2

REPORT INFORMATION
  Report Type: Spontaneous
  Country: JP (occurrence: JP)
  Receive Date: 20211008
  Receipt Date: 20220419
  Transmission Date: 20220721
  Serious: Yes (Life-Threatening, Hospitalization, Other)
  Sender: FDA-Public Use
  Company Number: JP-MSD-M2021-13806

PATIENT
  Age: 61 Year
  Sex: Female

DRUGS (5)
  1. KEYTRUDA [Suspect]
     Active Substance: PEMBROLIZUMAB
     Indication: Squamous cell carcinoma of head and neck
     Dosage: 200 MILLIGRAM, Q3W
     Route: 041
     Dates: end: 20210420
  2. FLUOROURACIL [Concomitant]
     Active Substance: FLUOROURACIL
     Indication: Squamous cell carcinoma of head and neck
     Dosage: UNK
     Route: 041
     Dates: end: 20210420
  3. CISPLATIN [Concomitant]
     Active Substance: CISPLATIN
     Indication: Squamous cell carcinoma of head and neck
     Dosage: UNK
     Route: 041
     Dates: end: 20210420
  4. PACLITAXEL [Concomitant]
     Active Substance: PACLITAXEL
     Indication: Malignant neoplasm progression
     Dosage: UNK
     Route: 041
     Dates: start: 20210511, end: 2021
  5. CETUXIMAB [Concomitant]
     Active Substance: CETUXIMAB
     Indication: Malignant neoplasm progression
     Dosage: UNK
     Route: 041
     Dates: start: 20210511, end: 2021

REACTIONS (2)
  - Cardiogenic shock [Recovering/Resolving]
  - Immune-mediated myocarditis [Recovering/Resolving]

NARRATIVE: CASE EVENT DATE: 20210530
